FAERS Safety Report 12145541 (Version 2)
Quarter: 2016Q1

REPORT INFORMATION
  Report Type: Report from Study
  Country: FR (occurrence: FR)
  Receive Date: 20160304
  Receipt Date: 20160321
  Transmission Date: 20160526
  Serious: Yes (Hospitalization, Other)
  Sender: FDA-Public Use
  Company Number: FR-SA-2015SA043428

PATIENT
  Age: 65 Year
  Sex: Male
  Weight: 64 kg

DRUGS (21)
  1. POLARAMINE [Concomitant]
     Active Substance: DEXCHLORPHENIRAMINE MALEATE
     Route: 042
     Dates: start: 20150306, end: 20150306
  2. ZOPHREN [Concomitant]
     Active Substance: ONDANSETRON
     Route: 042
     Dates: start: 20150123, end: 20150123
  3. ZOPHREN [Concomitant]
     Active Substance: ONDANSETRON
     Route: 042
     Dates: start: 20150213, end: 20150213
  4. NEULASTA [Concomitant]
     Active Substance: PEGFILGRASTIM
     Indication: NEUTROPENIA
     Route: 058
     Dates: start: 20150307, end: 20150307
  5. AZANTAC [Concomitant]
     Active Substance: RANITIDINE HYDROCHLORIDE
     Route: 042
     Dates: start: 20150213, end: 20150213
  6. POLARAMINE [Concomitant]
     Active Substance: DEXCHLORPHENIRAMINE MALEATE
     Route: 042
     Dates: start: 20150123, end: 20150123
  7. POLARAMINE [Concomitant]
     Active Substance: DEXCHLORPHENIRAMINE MALEATE
     Route: 042
     Dates: start: 20150213, end: 20150213
  8. NEULASTA [Concomitant]
     Active Substance: PEGFILGRASTIM
     Indication: NEUTROPENIA
     Route: 058
     Dates: start: 20150214, end: 20150214
  9. VOGALENE [Concomitant]
     Active Substance: METOPIMAZINE
     Dates: start: 20150319
  10. VOGALENE [Concomitant]
     Active Substance: METOPIMAZINE
     Dates: start: 20150324
  11. CABAZITAXEL [Suspect]
     Active Substance: CABAZITAXEL
     Indication: ADJUVANT THERAPY
     Dosage: FORM:CONCENTRATE FOR SOLUTION AND SOLVENT FOR SOLUTION FOR INFUSION
     Route: 042
     Dates: start: 20150123, end: 20150123
  12. AZANTAC [Concomitant]
     Active Substance: RANITIDINE HYDROCHLORIDE
     Route: 042
     Dates: start: 20150123, end: 20150123
  13. ZOPHREN [Concomitant]
     Active Substance: ONDANSETRON
     Route: 042
     Dates: start: 20150306, end: 20150306
  14. SOLU-MEDROL [Concomitant]
     Active Substance: METHYLPREDNISOLONE SODIUM SUCCINATE
     Route: 042
     Dates: start: 20150306, end: 20150306
  15. NEULASTA [Concomitant]
     Active Substance: PEGFILGRASTIM
     Indication: NEUTROPENIA
     Route: 058
     Dates: start: 20150124, end: 20150124
  16. CABAZITAXEL [Suspect]
     Active Substance: CABAZITAXEL
     Indication: ADJUVANT THERAPY
     Dosage: FORM:CONCENTRATE FOR SOLUTION AND SOLVENT FOR SOLUTION FOR INFUSION
     Route: 042
     Dates: start: 20150306, end: 20150306
  17. SOLU-MEDROL [Concomitant]
     Active Substance: METHYLPREDNISOLONE SODIUM SUCCINATE
     Route: 042
     Dates: start: 20150213, end: 20150213
  18. TIORFAN [Concomitant]
     Active Substance: RACECADOTRIL
     Dates: start: 20150319
  19. TIORFAN [Concomitant]
     Active Substance: RACECADOTRIL
     Dates: start: 20150324
  20. AZANTAC [Concomitant]
     Active Substance: RANITIDINE HYDROCHLORIDE
     Route: 042
     Dates: start: 20150306, end: 20150306
  21. SOLU-MEDROL [Concomitant]
     Active Substance: METHYLPREDNISOLONE SODIUM SUCCINATE
     Route: 042
     Dates: start: 20150123, end: 20150123

REACTIONS (3)
  - Pelvic abscess [Recovered/Resolved]
  - Aortic aneurysm [Recovered/Resolved]
  - Cholestasis [Recovered/Resolved]

NARRATIVE: CASE EVENT DATE: 20150325
